FAERS Safety Report 11286209 (Version 1)
Quarter: 2015Q3

REPORT INFORMATION
  Report Type: Spontaneous
  Country: TR (occurrence: None)
  Receive Date: 20150717
  Receipt Date: 20150717
  Transmission Date: 20151125
  Serious: Yes (Hospitalization, Other)
  Sender: FDA-Public Use
  Company Number: CO-ZN-TR-2015-029

PATIENT
  Age: 29 Year
  Sex: Female

DRUGS (8)
  1. NEOSTIGMINE [Suspect]
     Active Substance: NEOSTIGMINE
     Indication: NEUROMUSCULAR BLOCKADE REVERSAL
  2. THIOPENTAL SODIUM. [Concomitant]
     Active Substance: THIOPENTAL SODIUM
  3. METHYLPREDNISOLONE. [Concomitant]
     Active Substance: METHYLPREDNISOLONE
  4. RANITIDINE (UNKNOWN) (RANITIDINE HYDROCHLORIDE) [Suspect]
     Active Substance: RANITIDINE HYDROCHLORIDE
     Indication: LARYNGEAL OEDEMA
  5. FENTANYL. [Suspect]
     Active Substance: FENTANYL
     Indication: ANAESTHESIA
  6. ATROPINE. [Suspect]
     Active Substance: ATROPINE
     Indication: NEUROMUSCULAR BLOCKADE REVERSAL
  7. ATRACURIUM [Concomitant]
     Active Substance: ATRACURIUM
  8. SEVOFLURANE. [Suspect]
     Active Substance: SEVOFLURANE
     Indication: ANAESTHESIA

REACTIONS (4)
  - Unresponsive to stimuli [None]
  - Stupor [None]
  - Mental status changes postoperative [None]
  - Delirium [None]
